FAERS Safety Report 6361185-3 (Version None)
Quarter: 2009Q3

REPORT INFORMATION
  Report Type: 
  Country: None (occurrence: None)
  Receive Date: 20090918
  Receipt Date: 20090914
  Transmission Date: 20100115
  Serious: Yes (Other)
  Sender: FDA-Public Use
  Company Number: AU-TEVA-209284ISR

PATIENT
  Age: 68 Year
  Sex: Male

DRUGS (4)
  1. OXALIPLATIN [Suspect]
     Indication: COLON CANCER
     Route: 042
  2. OXALIPLATIN [Suspect]
     Route: 042
  3. ACETYLSALICYLIC ACID [Concomitant]
  4. CAPECITABINE [Concomitant]
     Indication: COLON CANCER
     Route: 048

REACTIONS (1)
  - TRANSIENT ISCHAEMIC ATTACK [None]
